FAERS Safety Report 14436816 (Version 1)
Quarter: 2018Q1

REPORT INFORMATION
  Report Type: Other
  Country: JP (occurrence: JP)
  Receive Date: 20180125
  Receipt Date: 20180125
  Transmission Date: 20180509
  Serious: Yes (Hospitalization, Other)
  Sender: FDA-Public Use
  Company Number: JP-ACTELION-A-CH2018-165722

PATIENT
  Age: 27 Year
  Sex: Male

DRUGS (4)
  1. SILDENAFIL. [Concomitant]
     Active Substance: SILDENAFIL
  2. BERAPROST SODIUM [Concomitant]
     Active Substance: BERAPROST SODIUM
  3. BOSENTAN. [Suspect]
     Active Substance: BOSENTAN
     Indication: PULMONARY ARTERIAL HYPERTENSION
     Route: 048
  4. NITRIC OXIDE. [Concomitant]
     Active Substance: NITRIC OXIDE

REACTIONS (11)
  - Cyanosis [Recovering/Resolving]
  - Clubbing [Recovering/Resolving]
  - Ventricular tachycardia [Recovering/Resolving]
  - Syncope [Recovering/Resolving]
  - Fatigue [Recovering/Resolving]
  - Systolic dysfunction [Recovering/Resolving]
  - Polycythaemia [Unknown]
  - Cardiac operation [Unknown]
  - Right ventricular failure [Recovering/Resolving]
  - Lung transplant [Unknown]
  - Dyspnoea [Recovering/Resolving]
